FAERS Safety Report 5228863-0 (Version None)
Quarter: 2007Q1

REPORT INFORMATION
  Report Type: 
  Country: None (occurrence: None)
  Receive Date: 20070205
  Receipt Date: 20070124
  Transmission Date: 20070707
  Serious: Yes (Hospitalization)
  Sender: FDA-Public Use
  Company Number: BR-ROCHE-477525

PATIENT
  Age: 36 Year
  Sex: Male
  Weight: 44.4 kg

DRUGS (10)
  1. PEG-INTERFERON ALFA 2A (RO 25-8310) [Suspect]
     Dosage: FORM: VIALS.
     Route: 058
     Dates: start: 20050601, end: 20060329
  2. FOLIC ACID [Concomitant]
     Dates: start: 20060615
  3. VITAMIN B COMPLEX CAP [Concomitant]
     Dates: start: 20060615
  4. EPOGEN [Concomitant]
     Dates: start: 19910615
  5. IRON [Concomitant]
     Dates: start: 19910615
  6. VITAMIN D [Concomitant]
     Dates: start: 19910615
  7. CIPROFLOXACIN HCL [Concomitant]
     Dates: start: 20060606
  8. NIFEDIPINE [Concomitant]
     Dates: start: 20060615
  9. RANITIDINE [Concomitant]
     Dates: start: 20060615
  10. DICLOFENAC SODIUM [Concomitant]
     Dates: start: 20060607

REACTIONS (3)
  - ARTHRITIS BACTERIAL [None]
  - GRAND MAL CONVULSION [None]
  - JOINT INJURY [None]
